FAERS Safety Report 6860562-1 (Version None)
Quarter: 2010Q3

REPORT INFORMATION
  Report Type: 
  Country: None (occurrence: None)
  Receive Date: 20100720
  Receipt Date: 20100712
  Transmission Date: 20110219
  Serious: Yes (Hospitalization)
  Sender: FDA-Public Use
  Company Number: B0662580A

PATIENT
  Age: 60 Year
  Sex: Female

DRUGS (1)
  1. LAMICTAL [Suspect]
     Route: 048
     Dates: start: 20060602, end: 20100613

REACTIONS (4)
  - GASTROINTESTINAL MUCOSAL DISORDER [None]
  - OFF LABEL USE [None]
  - RASH [None]
  - TOXIC SKIN ERUPTION [None]
